FAERS Safety Report 5745727-4 (Version None)
Quarter: 2008Q2

REPORT INFORMATION
  Report Type: 
  Country: None (occurrence: None)
  Receive Date: 20080521
  Receipt Date: 20080513
  Transmission Date: 20081010
  Serious: Yes (Other)
  Sender: FDA-Public Use
  Company Number: US-ABBOTT-08P-163-0451526-00

PATIENT
  Sex: Male
  Weight: 95.34 kg

DRUGS (6)
  1. HUMIRA [Suspect]
     Indication: CROHN'S DISEASE
     Route: 058
     Dates: start: 20070501, end: 20070701
  2. HUMIRA [Suspect]
     Route: 058
     Dates: start: 20070701
  3. IBANDRONATE SODIUM [Concomitant]
     Indication: OSTEOPOROSIS
  4. PREDNISONE TAB [Concomitant]
     Indication: CROHN'S DISEASE
     Route: 048
  5. TRAMADOL HCL [Concomitant]
     Indication: PAIN
     Dosage: AS NEEDED
  6. CALTRATE [Concomitant]
     Indication: OSTEOPOROSIS

REACTIONS (2)
  - NECK MASS [None]
  - NEOPLASM MALIGNANT [None]
